FAERS Safety Report 21441292 (Version 3)
Quarter: 2022Q4

REPORT INFORMATION
  Report Type: Report from Study
  Country: KR (occurrence: KR)
  Receive Date: 20221011
  Receipt Date: 20221130
  Transmission Date: 20230113
  Serious: No
  Sender: FDA-Public Use
  Company Number: KR-002147023-NVSC2022KR227482

PATIENT

DRUGS (12)
  1. RUXOLITINIB [Suspect]
     Active Substance: RUXOLITINIB
     Indication: Myelofibrosis
     Dosage: 20 MG, BID
     Route: 048
     Dates: start: 20200713, end: 20200810
  2. RUXOLITINIB [Suspect]
     Active Substance: RUXOLITINIB
     Dosage: 20 MG, BID
     Route: 048
     Dates: start: 20200824
  3. HYDROXYUREA [Concomitant]
     Active Substance: HYDROXYUREA
     Indication: Myelofibrosis
     Dosage: 500 MG, QD
     Route: 048
     Dates: start: 20200713, end: 20200921
  4. OXYCODONE HYDROCHLORIDE [Concomitant]
     Active Substance: OXYCODONE HYDROCHLORIDE
     Indication: Prophylaxis
     Dosage: 5 MG, QD
     Route: 048
     Dates: start: 20200824, end: 20200907
  5. PLAVIX [Concomitant]
     Active Substance: CLOPIDOGREL BISULFATE
     Indication: Angina unstable
     Dosage: 75 MG, QD
     Route: 048
     Dates: start: 20170127
  6. DICHLOZID [Concomitant]
     Indication: Angina unstable
     Dosage: 12.5 MG, QD
     Route: 048
     Dates: start: 20160419
  7. SIMVAST [Concomitant]
     Indication: Angina unstable
     Dosage: 20 MG, QD
     Route: 048
     Dates: start: 20170530
  8. DILTIAZEM HYDROCHLORIDE [Concomitant]
     Active Substance: DILTIAZEM HYDROCHLORIDE
     Indication: Angina unstable
     Dosage: 60 MG, QD
     Route: 048
     Dates: start: 20160322
  9. CONBLOC [Concomitant]
     Indication: Angina unstable
     Dosage: 0.625 MG, QD
     Route: 048
     Dates: start: 20190910
  10. FAMOTIDINE [Concomitant]
     Active Substance: FAMOTIDINE
     Indication: Prophylaxis
     Dosage: 40 G, QD
     Route: 048
     Dates: start: 20200817, end: 20200821
  11. LACTULOSE [Concomitant]
     Active Substance: LACTULOSE
     Indication: Prophylaxis
     Dosage: 15 ML, QD
     Route: 048
     Dates: start: 20200817, end: 20200821
  12. MACPERAN [METOCLOPRAMIDE HYDROCHLORIDE] [Concomitant]
     Indication: Prophylaxis
     Dosage: 10 MG, QD
     Route: 048
     Dates: start: 20200818, end: 20200822

REACTIONS (3)
  - Haemoglobin decreased [Unknown]
  - Platelet count abnormal [Unknown]
  - White blood cell disorder [Unknown]
